FAERS Safety Report 4652862-0 (Version None)
Quarter: 2005Q2

REPORT INFORMATION
  Report Type: 
  Country: None (occurrence: None)
  Receive Date: 20050502
  Receipt Date: 20050415
  Transmission Date: 20051028
  Serious: Yes (Death)
  Sender: FDA-Public Use
  Company Number: 10904

PATIENT
  Age: 34 Year
  Sex: Male

DRUGS (1)
  1. BLEOMYCIN [Suspect]

REACTIONS (1)
  - SUDDEN DEATH [None]
